FAERS Safety Report 8803571 (Version 2)
Quarter: 2013Q1

REPORT INFORMATION
  Report Type: Spontaneous
  Country: US (occurrence: US)
  Receive Date: 20120924
  Receipt Date: 20130207
  Transmission Date: 20140127
  Serious: Yes (Other)
  Sender: FDA-Public Use
  Company Number: US-UCBSA-066767

PATIENT
  Age: 67 Year
  Sex: Female

DRUGS (22)
  1. LACOSAMIDE [Suspect]
     Indication: EPILEPSY
     Dosage: DOSE:200 MG
     Route: 042
  2. LEVETIRACETAM [Concomitant]
     Indication: EPILEPSY
     Route: 042
  3. LEVETIRACETAM [Concomitant]
     Indication: EPILEPSY
     Route: 042
  4. LEVETIRACETAM [Concomitant]
     Indication: EPILEPSY
     Route: 042
  5. LEVETIRACETAM [Concomitant]
     Indication: EPILEPSY
     Route: 042
  6. METOPROLOL [Concomitant]
     Dosage: DOSE: 2.5 MG
     Route: 042
  7. METHYLPREDNISOLONE [Concomitant]
     Dosage: 40 MG DAILY
     Route: 042
  8. LOPERAMIDE [Concomitant]
     Dosage: RECEIVED IN LAST 2 DAYS
  9. CLOTRIMAZOLE [Concomitant]
  10. FLUCONAZOLE [Concomitant]
     Dosage: 400 MG DAILY
  11. ACYCLOVIR [Concomitant]
  12. NEUPOGEN [Concomitant]
     Dosage: UNKNOWN DOSE
  13. ONDANSETRON [Concomitant]
     Dosage: 8 MG ON THE DAY PRIOR TO CONSULTATION
     Route: 042
  14. PANTOPRAZOLE [Concomitant]
     Dosage: 40 MG DAILY
  15. CALCIUM PHOSPATE [Concomitant]
     Dosage: UNKNOWN DOSE
  16. PRIMIDONE [Concomitant]
     Dosage: DOSE: 250 MG DAILY
  17. FILGRASTIM [Concomitant]
     Dosage: 300 ?G DAILY
  18. POTASSIUM CHLORIDE [Concomitant]
     Dosage: UNKNOWN DOSE
  19. PHENYTOIN [Concomitant]
     Indication: EPILEPSY
     Route: 042
  20. PHENOBARBITAL [Concomitant]
     Indication: EPILEPSY
     Dosage: 2 BOLUS OF 600 MG
     Route: 040
  21. PHENOBARBITAL [Concomitant]
     Indication: EPILEPSY
     Route: 042
  22. LORAZEPAM [Concomitant]
     Indication: EPILEPSY
     Dosage: 2 MG
     Route: 040

REACTIONS (1)
  - Atrial fibrillation [Recovered/Resolved]
